FAERS Safety Report 9032371 (Version 2)
Quarter: 2013Q2

REPORT INFORMATION
  Report Type: Spontaneous
  Country: GB (occurrence: None)
  Receive Date: 20130108
  Receipt Date: 20130531
  Transmission Date: 20140414
  Serious: Yes (Other)
  Sender: FDA-Public Use
  Company Number: AUR-APL-2012-05644

PATIENT
  Age: 66 Year
  Sex: Female

DRUGS (3)
  1. RIBAVIRIN [Suspect]
     Indication: HEPATITIS C
     Dosage: 2 DOSES PER DAY.
     Route: 048
     Dates: start: 20121014
  2. PEGINTERFERON ALFA-2B [Suspect]
     Indication: HEPATITIS C
     Dosage: 1 DOSE PER WEEK.
     Dates: start: 20121014
  3. INCIVO [Suspect]
     Indication: HEPATITIS C
     Dosage: 3 DOSAGE FORMS (1 DOSAGE FORM, 3 IN 1 DAY), ORAL.
     Route: 048
     Dates: start: 20121014

REACTIONS (4)
  - Anaemia [None]
  - Fatigue [None]
  - Nausea [None]
  - Feeling abnormal [None]
